FAERS Safety Report 15683722 (Version 1)
Quarter: 2018Q4

REPORT INFORMATION
  Report Type: Spontaneous
  Country: MY (occurrence: MY)
  Receive Date: 20181204
  Receipt Date: 20181204
  Transmission Date: 20190205
  Serious: Yes (Hospitalization)
  Sender: FDA-Public Use
  Company Number: MY-TEVA-2018-MY-982747

PATIENT
  Age: 59 Year
  Sex: Male

DRUGS (8)
  1. RAMIPRIL. [Suspect]
     Active Substance: RAMIPRIL
     Route: 065
  2. SODIUM-CHLORIDE [Suspect]
     Active Substance: SODIUM CHLORIDE
     Indication: HYPONATRAEMIA
     Route: 041
  3. CLOPIDOGREL [Concomitant]
     Active Substance: CLOPIDOGREL BISULFATE
     Route: 065
  4. PANTOPRAZOLE [Suspect]
     Active Substance: PANTOPRAZOLE
     Route: 065
  5. ASPIRIN. [Concomitant]
     Active Substance: ASPIRIN
     Route: 065
  6. ATORVASTATIN [Concomitant]
     Active Substance: ATORVASTATIN
     Route: 065
  7. BISOPROLOL [Concomitant]
     Active Substance: BISOPROLOL
     Route: 065
  8. SODIUM CHLORIDE. [Suspect]
     Active Substance: SODIUM CHLORIDE
     Indication: HYPONATRAEMIA
     Dosage: APPROXIMATELY AFTER 14 HOURS, SWITCHED TO 0.9% SODIUM CHLORIDE
     Route: 041

REACTIONS (13)
  - Muscle rigidity [Recovered/Resolved]
  - Dysphonia [Recovered/Resolved]
  - Hyponatraemia [Recovered/Resolved]
  - Parkinsonism [Recovered/Resolved]
  - Bradykinesia [Recovered/Resolved]
  - Gaze palsy [Recovered/Resolved]
  - Delirium [Recovered/Resolved]
  - Eyelid ptosis [Recovered/Resolved]
  - Incoherent [Recovered/Resolved]
  - Osmotic demyelination syndrome [Recovered/Resolved]
  - Confusional state [Recovered/Resolved]
  - Tremor [Recovered/Resolved]
  - Somnolence [Recovered/Resolved]
